FAERS Safety Report 7046852-0 (Version None)
Quarter: 2010Q4

REPORT INFORMATION
  Report Type: 
  Country: None (occurrence: None)
  Receive Date: 20101015
  Receipt Date: 20101006
  Transmission Date: 20110411
  Serious: Yes (Hospitalization)
  Sender: FDA-Public Use
  Company Number: CA-JNJFOC-20101002537

PATIENT
  Sex: Male
  Weight: 84.5 kg

DRUGS (4)
  1. REMICADE [Suspect]
     Indication: ANKYLOSING SPONDYLITIS
     Route: 042
  2. REMICADE [Suspect]
     Route: 042
  3. TYLENOL [Concomitant]
     Indication: PREMEDICATION
     Route: 042
  4. BENADRYL [Concomitant]
     Indication: PREMEDICATION
     Route: 042

REACTIONS (6)
  - CHILLS [None]
  - DIZZINESS [None]
  - HEART RATE INCREASED [None]
  - HYPOAESTHESIA [None]
  - INFUSION RELATED REACTION [None]
  - VOMITING [None]
